FAERS Safety Report 6328707-X (Version None)
Quarter: 2009Q3

REPORT INFORMATION
  Report Type: 
  Country: None (occurrence: None)
  Receive Date: 20090826
  Receipt Date: 20071002
  Transmission Date: 20100115
  Serious: Yes (Hospitalization)
  Sender: FDA-Public Use
  Company Number: US-ASTRAZENECA-2006UW21110

PATIENT
  Sex: Female
  Weight: 59.4 kg

DRUGS (11)
  1. SEROQUEL [Suspect]
     Indication: DEPRESSION
     Route: 048
     Dates: start: 20020531, end: 20060101
  2. SEROQUEL [Suspect]
     Indication: SCHIZOPHRENIA
     Route: 048
     Dates: start: 20020531, end: 20060101
  3. SEROQUEL [Suspect]
     Dosage: 100 TO 200 MG
     Route: 048
     Dates: start: 20020630
  4. SEROQUEL [Suspect]
     Dosage: 100 TO 200 MG
     Route: 048
     Dates: start: 20020630
  5. RISPERIDONE [Concomitant]
  6. OLANZAPINE [Concomitant]
  7. EFFEXOR [Concomitant]
     Dates: start: 20000301
  8. TYLENOL (CAPLET) [Concomitant]
     Route: 048
     Dates: start: 20020630
  9. VENLAFAXINE HCL [Concomitant]
     Route: 048
     Dates: start: 20020702
  10. KLONOPIN [Concomitant]
     Route: 048
     Dates: start: 20020630
  11. KEFLEX [Concomitant]
     Route: 048
     Dates: start: 20020706

REACTIONS (2)
  - DIABETES MELLITUS [None]
  - HYSTERECTOMY [None]
